FAERS Safety Report 24725519 (Version 2)
Quarter: 2025Q1

REPORT INFORMATION
  Report Type: Spontaneous
  Country: FR (occurrence: FR)
  Receive Date: 20241212
  Receipt Date: 20250307
  Transmission Date: 20250408
  Serious: Yes (Hospitalization)
  Sender: RANBAXY
  Company Number: FR-SUN PHARMACEUTICAL INDUSTRIES LTD-2024RR-482331

PATIENT
  Age: 60 Year
  Sex: Male
  Weight: 80.3 kg

DRUGS (5)
  1. VALACYCLOVIR [Suspect]
     Active Substance: VALACYCLOVIR HYDROCHLORIDE
     Indication: Mantle cell lymphoma
     Dosage: 500 MILLIGRAM, DAILY
     Route: 048
     Dates: start: 20241011, end: 20241029
  2. IOBITRIDOL [Suspect]
     Active Substance: IOBITRIDOL
     Indication: Computerised tomogram
     Route: 040
     Dates: start: 20241014, end: 20241014
  3. BACTRIM [Suspect]
     Active Substance: SULFAMETHOXAZOLE\TRIMETHOPRIM
     Indication: Mantle cell lymphoma
     Route: 048
     Dates: start: 20241011, end: 20241029
  4. AUGMENTIN [Suspect]
     Active Substance: AMOXICILLIN\CLAVULANATE POTASSIUM
     Indication: Febrile bone marrow aplasia
     Dosage: 3 GRAM, DAILY
     Route: 048
     Dates: start: 20241018, end: 20241024
  5. CIPROFLOXACIN [Suspect]
     Active Substance: CIPROFLOXACIN
     Indication: Febrile bone marrow aplasia
     Dosage: 1 GRAM, DAILY
     Route: 048
     Dates: start: 20241018, end: 20241024

REACTIONS (2)
  - Toxic skin eruption [Recovering/Resolving]
  - Eyelid oedema [Recovered/Resolved]

NARRATIVE: CASE EVENT DATE: 20241019
